FAERS Safety Report 7477208-4 (Version None)
Quarter: 2011Q2

REPORT INFORMATION
  Report Type: 
  Country: None (occurrence: None)
  Receive Date: 20110512
  Receipt Date: 20110511
  Transmission Date: 20111010
  Serious: Yes (Other)
  Sender: FDA-Public Use
  Company Number: JP-BRISTOL-MYERS SQUIBB COMPANY-15704620

PATIENT
  Sex: Male

DRUGS (1)
  1. TAXOL [Suspect]

REACTIONS (1)
  - ACUTE LUNG INJURY [None]
